FAERS Safety Report 13420404 (Version 1)
Quarter: 2017Q2

REPORT INFORMATION
  Report Type: Spontaneous
  Country: US (occurrence: US)
  Receive Date: 20170407
  Receipt Date: 20170407
  Transmission Date: 20170830
  Serious: Yes (Hospitalization, Other)
  Sender: FDA-Public Use
  Company Number: US-ZYDUS-014504

PATIENT
  Age: 40 Year
  Sex: Female

DRUGS (2)
  1. PHENTERMINE/TOPIRAMATE [Interacting]
     Active Substance: PHENTERMINE HYDROCHLORIDE\TOPIRAMATE
     Indication: WEIGHT DECREASED
     Route: 065
  2. VENLAFAXINE/VENLAFAXINE HYDROCHLORIDE [Suspect]
     Active Substance: VENLAFAXINE HYDROCHLORIDE
     Indication: DEPRESSION
     Route: 048

REACTIONS (5)
  - Intentional self-injury [Unknown]
  - Mood altered [Recovered/Resolved]
  - Drug interaction [Unknown]
  - Psychotic disorder [Recovered/Resolved]
  - Delusion [Recovered/Resolved]
